FAERS Safety Report 10236625 (Version 1)
Quarter: 2014Q2

REPORT INFORMATION
  Report Type: Spontaneous
  Country: DE (occurrence: DE)
  Receive Date: 20140613
  Receipt Date: 20140613
  Transmission Date: 20141212
  Serious: Yes (Hospitalization)
  Sender: FDA-Public Use
  Company Number: DE-WATSON-2014-12516

PATIENT
  Age: 42 Year
  Sex: Male

DRUGS (3)
  1. MIRTAZAPINE (UNKNOWN) [Suspect]
     Indication: PRODUCT USED FOR UNKNOWN INDICATION
     Dosage: 15 MG, UNK
     Route: 048
     Dates: start: 20130403, end: 20130408
  2. MIRTAZAPINE (UNKNOWN) [Suspect]
     Dosage: 30 MG, UNK
     Route: 048
     Dates: start: 20130409, end: 20130421
  3. PROMETHAZINE (UNKNOWN) [Suspect]
     Indication: RESTLESSNESS
     Dosage: 25 MG, UNK
     Route: 048
     Dates: start: 20130403, end: 20130419

REACTIONS (1)
  - Restlessness [Recovered/Resolved]
